FAERS Safety Report 21848104 (Version 5)
Quarter: 2023Q1

REPORT INFORMATION
  Report Type: Spontaneous
  Country: US (occurrence: US)
  Receive Date: 20230111
  Receipt Date: 20230216
  Transmission Date: 20230418
  Serious: Yes (Hospitalization, Other)
  Sender: FDA-Public Use
  Company Number: US-BIOVITRUM-2023US00580

PATIENT
  Age: 0 Year
  Sex: Female

DRUGS (3)
  1. SYNAGIS [Suspect]
     Active Substance: PALIVIZUMAB
     Indication: Premature baby
     Dates: start: 20221115
  2. SYNAGIS [Suspect]
     Active Substance: PALIVIZUMAB
     Indication: Antiviral prophylaxis
     Dates: start: 20221116
  3. SYNAGIS [Suspect]
     Active Substance: PALIVIZUMAB

REACTIONS (8)
  - Bronchiolitis [Recovered/Resolved]
  - Cyanosis [Unknown]
  - Pertussis [Unknown]
  - Bradycardia [Unknown]
  - Respiratory distress [Unknown]
  - Hypoxia [Unknown]
  - Vomiting [Unknown]
  - Rhinovirus infection [Unknown]

NARRATIVE: CASE EVENT DATE: 20221130
